FAERS Safety Report 16734600 (Version 1)
Quarter: 2019Q3

REPORT INFORMATION
  Report Type: Spontaneous
  Country: DE (occurrence: DE)
  Receive Date: 20190823
  Receipt Date: 20190823
  Transmission Date: 20191005
  Serious: Yes (Hospitalization, Other)
  Sender: FDA-Public Use
  Company Number: DE-ACCORD-152692

PATIENT
  Age: 77 Year
  Sex: Female
  Weight: 77 kg

DRUGS (3)
  1. ONDANSETRON HEXAL [Concomitant]
     Active Substance: ONDANSETRON
     Dosage: STRENGTH 2 MG / ML SOLUTION FOR INJECTION
     Route: 042
     Dates: start: 20190726
  2. CARBOPLATIN ACCORD [Suspect]
     Active Substance: CARBOPLATIN
     Indication: OVARIAN CANCER
     Dosage: STRENGTH 10 MG / ML CONCENTRATE FOR INFUSION
     Route: 042
     Dates: start: 20190726
  3. DEXA JENAPHARM [Concomitant]
     Dosage: STRENGTH 8MG INJECT JENAPHARM
     Route: 042
     Dates: start: 20190726

REACTIONS (2)
  - Loss of consciousness [Unknown]
  - Circulatory collapse [Unknown]

NARRATIVE: CASE EVENT DATE: 20190726
